FAERS Safety Report 8231075-X (Version None)
Quarter: 2012Q1

REPORT INFORMATION
  Report Type: 
  Country: None (occurrence: None)
  Receive Date: 20120323
  Receipt Date: 20120321
  Transmission Date: 20120608
  Serious: No
  Sender: FDA-Public Use
  Company Number: US-BAYER-2012-028121

PATIENT
  Age: 86 Year
  Sex: Female

DRUGS (1)
  1. AVELOX [Suspect]
     Indication: COUGH
     Dosage: 400 MG, QD
     Route: 048
     Dates: start: 20120221, end: 20120221

REACTIONS (2)
  - RETCHING [None]
  - NAUSEA [None]
